FAERS Safety Report 12509182 (Version 1)
Quarter: 2016Q2

REPORT INFORMATION
  Report Type: Spontaneous
  Country: US (occurrence: US)
  Receive Date: 20160629
  Receipt Date: 20160629
  Transmission Date: 20160815
  Serious: No
  Sender: FDA-Public Use
  Company Number: US-ASTRAZENECA-2016SE67992

PATIENT
  Sex: Female

DRUGS (1)
  1. BRILINTA [Suspect]
     Active Substance: TICAGRELOR
     Indication: CORONARY ARTERY BYPASS
     Dosage: 90.0MG UNKNOWN
     Route: 048
     Dates: start: 20160609

REACTIONS (3)
  - Activities of daily living impaired [Unknown]
  - Fatigue [Unknown]
  - Dyspnoea [Unknown]
